FAERS Safety Report 10748515 (Version 18)
Quarter: 2017Q1

REPORT INFORMATION
  Report Type: Spontaneous
  Country: CA (occurrence: CA)
  Receive Date: 20150129
  Receipt Date: 20170131
  Transmission Date: 20170428
  Serious: Yes (Hospitalization, Other)
  Sender: FDA-Public Use
  Company Number: CA-GLAXOSMITHKLINE INC.-CA2015GSK008712

PATIENT
  Age: 55 Year
  Sex: Female
  Weight: 62 kg

DRUGS (5)
  1. PREDNISONE. [Suspect]
     Active Substance: PREDNISONE
     Indication: PRODUCT USED FOR UNKNOWN INDICATION
     Dosage: 15 MG, QD
     Route: 048
     Dates: start: 2013
  2. TYLENOL [Concomitant]
     Active Substance: ACETAMINOPHEN
     Indication: PRODUCT USED FOR UNKNOWN INDICATION
     Dosage: UNK
     Route: 048
  3. HYDROXYCHLOROQUINE SULFATE. [Concomitant]
     Active Substance: HYDROXYCHLOROQUINE SULFATE
     Indication: PRODUCT USED FOR UNKNOWN INDICATION
     Dosage: 400 MG, QD
     Route: 048
  4. BENLYSTA [Suspect]
     Active Substance: BELIMUMAB
     Indication: SYSTEMIC LUPUS ERYTHEMATOSUS
     Dosage: 620 MG, Z
     Route: 042
     Dates: start: 20140915
  5. STELARA [Concomitant]
     Active Substance: USTEKINUMAB
     Indication: PRODUCT USED FOR UNKNOWN INDICATION
     Dosage: UNK

REACTIONS (28)
  - Pneumonia [Unknown]
  - Wound infection [Recovering/Resolving]
  - Drug ineffective [Unknown]
  - Muscle atrophy [Unknown]
  - Ulcer [Unknown]
  - Fatigue [Not Recovered/Not Resolved]
  - Pituitary-dependent Cushing^s syndrome [Unknown]
  - Enamel anomaly [Unknown]
  - Mouth ulceration [Unknown]
  - Influenza [Unknown]
  - Blood pressure abnormal [Recovering/Resolving]
  - Malaise [Unknown]
  - Post procedural discharge [Not Recovered/Not Resolved]
  - Systemic lupus erythematosus [Not Recovered/Not Resolved]
  - Rheumatoid arthritis [Unknown]
  - Wound [Recovering/Resolving]
  - Herpes zoster [Unknown]
  - Wound secretion [Recovering/Resolving]
  - Epistaxis [Unknown]
  - Pain [Unknown]
  - Gait disturbance [Recovering/Resolving]
  - Bone density abnormal [Unknown]
  - Walking aid user [Unknown]
  - Localised infection [Not Recovered/Not Resolved]
  - Rheumatic disorder [Unknown]
  - Peripheral swelling [Unknown]
  - Insomnia [Not Recovered/Not Resolved]
  - Finger deformity [Not Recovered/Not Resolved]

NARRATIVE: CASE EVENT DATE: 20141101
